FAERS Safety Report 10347565 (Version 2)
Quarter: 2014Q3

REPORT INFORMATION
  Report Type: Spontaneous
  Country: US (occurrence: US)
  Receive Date: 20140729
  Receipt Date: 20140831
  Transmission Date: 20150326
  Serious: No
  Sender: FDA-Public Use
  Company Number: US-009507513-1407USA009865

PATIENT
  Sex: Female

DRUGS (1)
  1. NUVARING [Suspect]
     Active Substance: ETHINYL ESTRADIOL\ETONOGESTREL
     Dosage: 3 STANDARD DOSE OF 1
     Route: 067

REACTIONS (4)
  - Product container issue [Unknown]
  - Product shape issue [Unknown]
  - Drug dose omission [Unknown]
  - No adverse event [Unknown]
